FAERS Safety Report 23336593 (Version 2)
Quarter: 2024Q2

REPORT INFORMATION
  Report Type: Report from Study
  Country: US (occurrence: US)
  Receive Date: 20231226
  Receipt Date: 20240412
  Transmission Date: 20240715
  Serious: Yes (Other)
  Sender: FDA-Public Use
  Company Number: US-ACADIA PHARMACEUTICALS INC.-ACA-2023-TRF-005695

PATIENT
  Age: 35 Year
  Sex: Female

DRUGS (2)
  1. DAYBUE [Suspect]
     Active Substance: TROFINETIDE
     Dosage: UNK
     Route: 065
     Dates: start: 202306, end: 20231113
  2. DAYBUE [Suspect]
     Active Substance: TROFINETIDE
     Dosage: UNK
     Route: 065
     Dates: start: 202312, end: 202403

REACTIONS (6)
  - Gastrointestinal haemorrhage [Recovered/Resolved]
  - Anal incontinence [Unknown]
  - Flatulence [Unknown]
  - Abdominal distension [Unknown]
  - Urinary tract infection [Unknown]
  - Diarrhoea [Unknown]

NARRATIVE: CASE EVENT DATE: 20231113
